FAERS Safety Report 7324180-3 (Version None)
Quarter: 2011Q1

REPORT INFORMATION
  Report Type: 
  Country: None (occurrence: None)
  Receive Date: 20110217
  Receipt Date: 20110204
  Transmission Date: 20110831
  Serious: Yes (Death)
  Sender: FDA-Public Use
  Company Number: US-2011-10043

PATIENT
  Age: 68 Year
  Sex: Male

DRUGS (30)
  1. ETOPOSIDE [Concomitant]
  2. ACETAMINOPHEN [Concomitant]
  3. ONDANSETRON (ONDANSETRON HYDROCHLORIDE) [Concomitant]
  4. MESNA [Concomitant]
  5. ZYPREXA [Concomitant]
  6. HALOPERIDOL [Concomitant]
  7. BENADRYL [Concomitant]
  8. KEPPRA [Concomitant]
  9. ALLOPURINOL [Concomitant]
  10. SODIUM PHOSPHATE (SODIUM PHOSPHATE) [Concomitant]
  11. LORAZEPAM [Concomitant]
  12. DROPERIDOL [Concomitant]
  13. TRAZODONE HCL [Concomitant]
  14. DEXAMETHASONE SODIUM PHOSPHATE [Concomitant]
  15. CYCLOPHOSPHAMIDE [Concomitant]
  16. OMEPRAZOLE [Concomitant]
  17. FLUCONAZOLE [Concomitant]
  18. AMLODIPINE [Concomitant]
  19. PROCHLORPERAZINE (PROCHLORPERAZINE MALEATE) [Concomitant]
  20. CIPRO [Concomitant]
  21. URSODIOL [Concomitant]
  22. BUSULFAN [Suspect]
     Indication: LYMPHOMA
     Dosage: 73.6 MG MILLIGRAM(S), DAILY DOSE, INTRAVENOUS, 298 MG MILLIGRAM(S), DAILY DOSE, INTRAVENOUS
     Route: 042
     Dates: start: 20110112, end: 20110112
  23. BUSULFAN [Suspect]
     Indication: LYMPHOMA
     Dosage: 73.6 MG MILLIGRAM(S), DAILY DOSE, INTRAVENOUS, 298 MG MILLIGRAM(S), DAILY DOSE, INTRAVENOUS
     Route: 042
     Dates: start: 20110118, end: 20110121
  24. LOPERAMIDE [Concomitant]
  25. SIMVASTATIN [Concomitant]
  26. ADVAIR DISKUS (FLUTICASONE PROPIONATE, SALMETEROL XINAFOATE) [Concomitant]
  27. CITALOPRAM (CITALOPRAM) [Concomitant]
  28. HYDROCORTONE [Concomitant]
  29. TRIMETHOPRIM [Concomitant]
  30. FUROSEMIDE [Concomitant]

REACTIONS (8)
  - PULMONARY EMBOLISM [None]
  - MENTAL STATUS CHANGES [None]
  - CARDIO-RESPIRATORY ARREST [None]
  - PULSELESS ELECTRICAL ACTIVITY [None]
  - CARDIOMEGALY [None]
  - DELIRIUM [None]
  - STEM CELL TRANSPLANT [None]
  - HEPATOSPLENOMEGALY [None]
